FAERS Safety Report 21903904 (Version 2)
Quarter: 2023Q1

REPORT INFORMATION
  Report Type: Spontaneous
  Country: GB (occurrence: GB)
  Receive Date: 20230124
  Receipt Date: 20230210
  Transmission Date: 20230418
  Serious: Yes (Other)
  Sender: FDA-Public Use
  Company Number: None

PATIENT

DRUGS (18)
  1. IBUPROFEN [Suspect]
     Active Substance: IBUPROFEN
     Indication: Product used for unknown indication
     Route: 065
  2. AMLODIPINE [Concomitant]
     Active Substance: AMLODIPINE BESYLATE
     Indication: Left ventricular dysfunction
     Dosage: 5 MILLIGRAM, QD (ONE TO BE TAKEN EACH DAY 28 TABLET)
     Route: 065
  3. APIXABAN [Concomitant]
     Active Substance: APIXABAN
     Indication: Deep vein thrombosis
     Dosage: 5 MILLIGRAM, BID (ONE TO BE TAKEN TWICE A DAY 56 TABLET )
     Route: 065
  4. BIMATOPROST [Concomitant]
     Active Substance: BIMATOPROST
     Indication: Product used for unknown indication
     Dosage: 100MICROGRAMS/ML,1 GTT DROPS, QD (ONE DROP TO BE USED IN THE RIGHT EYE ONCE DAILY IN THE EVENING 3 M
     Route: 047
  5. DOCUSATE [Concomitant]
     Active Substance: DOCUSATE
     Indication: Constipation
     Dosage: 200 MILLIGRAM, BID (TAKE TWO TWICE A DAY WHEN NEEDED)
     Route: 065
  6. FUROSEMIDE [Concomitant]
     Active Substance: FUROSEMIDE
     Indication: Left ventricular dysfunction
     Dosage: 80 MILLIGRAM, QD (TWO TO BE TAKEN DAILY WITH BREAKFAST 56 TABLET)
     Route: 065
  7. FUROSEMIDE [Concomitant]
     Active Substance: FUROSEMIDE
     Dosage: 20 MILLIGRAM, QD (ONE TO BE TAKEN AT LUNCHTIME)40MG TABLETS TWO TO BE TAKEN DAILY WITH BREAKFAST 56
     Route: 065
  8. LACTULOSE [Concomitant]
     Active Substance: LACTULOSE
     Indication: Constipation
     Dosage: 10 MILLILITER, BID (TWO 5ML SPOONFULS TO BE TAKEN TWICE A DAY WHEN NEEDED FOR CONSTIPATION 500 ML)/S
     Route: 048
     Dates: start: 20220630
  9. NEBIVOLOL [Concomitant]
     Active Substance: NEBIVOLOL
     Indication: Wolff-Parkinson-White syndrome
     Dosage: 1.25 MILLIGRAM, QD (TAKE HALF A TABLET =1.25 MG, DAILY 28 TABLET)2.5MG, TAKE HALF A TABLET (-1.25 MG
     Route: 065
  10. OMEPRAZOLE [Concomitant]
     Active Substance: OMEPRAZOLE
     Indication: Product used for unknown indication
     Dosage: 20 MILLIGRAM, BID (ONE TO BE TAKEN TWICE A DAY)
     Route: 065
  11. SENNA LEAF [Concomitant]
     Active Substance: SENNA LEAF
     Indication: Constipation
     Dosage: 15 MILLIGRAM, QD (TWO TO BE TAKEN AT NIGHT WHEN NEEDED 56 TABLET)/SENNA 7.5MG TABLETS TWO TO BE TAKE
     Route: 065
     Dates: start: 20221213
  12. PROCHLORPERAZINE [Concomitant]
     Active Substance: PROCHLORPERAZINE
     Indication: Vertigo
     Dosage: 05 MILLIGRAM, TID (ONE TO BE TAKEN THREE TIMES A DAY)
     Route: 065
  13. COCODAMOL [Concomitant]
     Active Substance: ACETAMINOPHEN\CODEINE PHOSPHATE
     Indication: Product used for unknown indication
     Dosage: UNK, QID (ONE OR TWO TO BE TAKEN FOUR TIMES A DAY WHEN REQUIRED)/30MG/500MG, ONE OR TWO TO BE TAKEN
     Route: 065
  14. BECLOMETHASONE DIPROPIONATE\FORMOTEROL FUMARATE\GLYCOPYRROLATE [Concomitant]
     Active Substance: BECLOMETHASONE DIPROPIONATE\FORMOTEROL FUMARATE\GLYCOPYRROLATE
     Indication: Product used for unknown indication
     Dosage: 87/5 / 9MICROGRAMS/DOSE, INHALER (CHIESI LTD) 2 DOSAGE FORM, BID (TWO PUFFS TO BE INHALED TWICE A DA
     Route: 055
     Dates: start: 20221126
  15. ALBUTEROL SULFATE [Concomitant]
     Active Substance: ALBUTEROL SULFATE
     Indication: Chronic obstructive pulmonary disease
     Dosage: 100MICROGRAMS/DOSE INHALER CFC FREE (TEVA UK LTD)2 DOSAGE FORM, QID (2 PUFFS FOUR TIMES A DAY AS REQ
     Route: 055
     Dates: start: 20221126
  16. LATANOPROST [Concomitant]
     Active Substance: LATANOPROST
     Indication: Product used for unknown indication
     Dosage: 1 DROP, QD (ONE DROP TO BE USED AT NIGHT IN THE EFFECTED EYE (S) 2.5ML
     Route: 047
  17. LORAZEPAM [Concomitant]
     Active Substance: LORAZEPAM
     Indication: Agitation
     Dosage: 1 DOSAGE FORM, QD (ONE TO BE TAKEN AS REQUIRED)
     Route: 065
  18. AFLIBERCEPT [Concomitant]
     Active Substance: AFLIBERCEPT
     Indication: Product used for unknown indication
     Dosage: UNK, (FOR EVERY EIGHT WEEKS)

REACTIONS (1)
  - Acute kidney injury [Recovered/Resolved]
